FAERS Safety Report 18301719 (Version 1)
Quarter: 2020Q3

REPORT INFORMATION
  Report Type: Spontaneous
  Country: US (occurrence: US)
  Receive Date: 20200923
  Receipt Date: 20200923
  Transmission Date: 20201103
  Serious: No
  Sender: FDA-Public Use
  Company Number: US-009507513-2009USA008255

PATIENT
  Sex: Female

DRUGS (2)
  1. KEYTRUDA [Suspect]
     Active Substance: PEMBROLIZUMAB
     Dosage: UNK
  2. LENVATINIB MESYLATE [Suspect]
     Active Substance: LENVATINIB MESYLATE
     Indication: ENDOMETRIAL CANCER
     Dosage: 20 MILLIGRAM, DAILY
     Dates: start: 202006

REACTIONS (7)
  - Asthenia [Unknown]
  - Lethargy [Unknown]
  - Influenza [Unknown]
  - Immune system disorder [Unknown]
  - Decreased activity [Unknown]
  - Fatigue [Unknown]
  - Hypersomnia [Unknown]
